FAERS Safety Report 6071021-0 (Version None)
Quarter: 2009Q1

REPORT INFORMATION
  Report Type: 
  Country: None (occurrence: None)
  Receive Date: 20090209
  Receipt Date: 20090202
  Transmission Date: 20090719
  Serious: Yes (Other)
  Sender: FDA-Public Use
  Company Number: B0556959A

PATIENT
  Age: 56 Year
  Sex: Female

DRUGS (3)
  1. VENTOLIN [Suspect]
     Indication: ASTHMA
     Dosage: 2PUFF AS REQUIRED
     Route: 055
     Dates: start: 20090127
  2. IBUPROFEN TABLETS [Concomitant]
  3. DICLOFENAC [Concomitant]

REACTIONS (3)
  - ASTHMA [None]
  - HEART RATE INCREASED [None]
  - INSOMNIA [None]
